FAERS Safety Report 6304404-1 (Version None)
Quarter: 2009Q3

REPORT INFORMATION
  Report Type: 
  Country: None (occurrence: None)
  Receive Date: 20090811
  Receipt Date: 20090730
  Transmission Date: 20100115
  Serious: Yes (Other)
  Sender: FDA-Public Use
  Company Number: GB-WYE-H10393909

PATIENT
  Age: 52 Year
  Sex: Female

DRUGS (4)
  1. VENLAFAXINE HYDROCHLORIDE [Suspect]
     Dosage: UNKNOWN
  2. FERROUS SULFATE TAB [Concomitant]
  3. MEBEVERINE [Concomitant]
  4. METHYLENE BLUE [Interacting]
     Indication: SURGERY
     Dosage: 7.5 MG/KG
     Route: 042

REACTIONS (6)
  - APHASIA [None]
  - CONFUSIONAL STATE [None]
  - DISINHIBITION [None]
  - DRUG INTERACTION [None]
  - DRUG TOXICITY [None]
  - NYSTAGMUS [None]
